FAERS Safety Report 10945351 (Version 1)
Quarter: 2015Q1

REPORT INFORMATION
  Report Type: Spontaneous
  Country: US (occurrence: US)
  Receive Date: 20150323
  Receipt Date: 20150323
  Transmission Date: 20150721
  Serious: Yes (Other)
  Sender: FDA-Public Use
  Company Number: US-PFIZER INC-2015097209

PATIENT
  Sex: Female

DRUGS (1)
  1. NEURONTIN [Suspect]
     Active Substance: GABAPENTIN

REACTIONS (5)
  - Hypersensitivity [Unknown]
  - Pruritus [Unknown]
  - Anxiety [Unknown]
  - Pharyngeal oedema [Unknown]
  - Swelling [Unknown]
